FAERS Safety Report 5119877-X (Version None)
Quarter: 2006Q4

REPORT INFORMATION
  Report Type: 
  Country: None (occurrence: None)
  Receive Date: 20061003
  Receipt Date: 20060704
  Transmission Date: 20070319
  Serious: Yes (Hospitalization)
  Sender: FDA-Public Use
  Company Number: BE-BOEHRINGER INGELHEIM GMBH, GERMANY-2006-BL-00158BL

PATIENT
  Sex: Female
  Weight: 55 kg

DRUGS (4)
  1. TPV/RTV CO-ADMIN [Suspect]
     Indication: HIV INFECTION
     Dosage: 250/100 MG X 4
     Route: 048
     Dates: start: 20060413, end: 20060421
  2. TRIZIVIR [Suspect]
     Indication: HIV INFECTION
     Dosage: 300/150/300 MG X 2
     Route: 048
     Dates: start: 20060413, end: 20060421
  3. VIREAD [Concomitant]
     Indication: HIV INFECTION
     Route: 048
     Dates: start: 20060413, end: 20060421
  4. FUZEON [Concomitant]
     Indication: HIV INFECTION
     Dosage: 90 MG/ML X 2
     Route: 058
     Dates: start: 20060413, end: 20060421

REACTIONS (4)
  - LIVER FUNCTION TEST ABNORMAL [None]
  - PYREXIA [None]
  - SHOCK [None]
  - SYNCOPE [None]
